FAERS Safety Report 20228592 (Version 1)
Quarter: 2021Q4

REPORT INFORMATION
  Report Type: Spontaneous
  Country: US (occurrence: US)
  Receive Date: 20211225
  Receipt Date: 20211225
  Transmission Date: 20220303
  Serious: No
  Sender: FDA-Public Use
  Company Number: US-SA-SAC20211222000113

PATIENT
  Age: 63 Year
  Sex: Male

DRUGS (5)
  1. DUPIXENT [Suspect]
     Active Substance: DUPILUMAB
     Indication: Asthma
     Dosage: 300 MG, QOW
     Route: 058
     Dates: start: 20211104
  2. ALBUTEROL [Concomitant]
     Active Substance: ALBUTEROL
  3. FAMOTIDINE [Concomitant]
     Active Substance: FAMOTIDINE
  4. MOMETASONE [Concomitant]
     Active Substance: MOMETASONE
  5. PENICILLIN [Concomitant]
     Active Substance: PENICILLIN

REACTIONS (2)
  - Throat clearing [Not Recovered/Not Resolved]
  - Asthma [Not Recovered/Not Resolved]

NARRATIVE: CASE EVENT DATE: 20210101
